FAERS Safety Report 4469589-0 (Version None)
Quarter: 2004Q4

REPORT INFORMATION
  Report Type: 
  Country: None (occurrence: None)
  Receive Date: 20041008
  Receipt Date: 20041001
  Transmission Date: 20050328
  Serious: Yes (Other)
  Sender: FDA-Public Use
  Company Number: US-ABBOTT-04P-163-0275784-00

PATIENT
  Sex: Female
  Weight: 52.21 kg

DRUGS (7)
  1. SYNTHROID [Suspect]
     Indication: THYROID GLAND CANCER
     Route: 048
     Dates: start: 20010101, end: 20040301
  2. SYNTHROID [Suspect]
     Route: 048
     Dates: start: 19980101, end: 20010101
  3. SYNTHROID [Suspect]
     Route: 048
     Dates: start: 20040301, end: 20040401
  4. SYNTHROID [Suspect]
     Route: 048
     Dates: start: 20040401, end: 20040705
  5. SYNTHROID [Suspect]
     Route: 058
     Dates: start: 20040706
  6. PRENATE ELITE [Concomitant]
     Indication: PREGNANCY
     Route: 048
     Dates: start: 20040801
  7. ASPIRIN [Concomitant]
     Indication: DRUG USE FOR UNKNOWN INDICATION
     Route: 048
     Dates: start: 20040801

REACTIONS (4)
  - ABORTION SPONTANEOUS [None]
  - BLOOD THYROID STIMULATING HORMONE INCREASED [None]
  - DRUG EXPOSURE DURING PREGNANCY [None]
  - PREGNANCY [None]
